FAERS Safety Report 13603408 (Version 1)
Quarter: 2017Q2

REPORT INFORMATION
  Report Type: Spontaneous
  Country: US (occurrence: US)
  Receive Date: 20170601
  Receipt Date: 20170601
  Transmission Date: 20170912
  Serious: Yes (Other)
  Sender: FDA-Public Use
  Company Number: US-OTSUKA-2016_024859

PATIENT
  Sex: Female

DRUGS (2)
  1. SAMSCA [Suspect]
     Indication: HYPONATRAEMIA
     Dosage: 15 MG, QD
     Route: 065
     Dates: start: 20161019
  2. SAMSCA [Suspect]
     Indication: INAPPROPRIATE ANTIDIURETIC HORMONE SECRETION

REACTIONS (1)
  - Rapid correction of hyponatraemia [Not Recovered/Not Resolved]

NARRATIVE: CASE EVENT DATE: 20161020
